FAERS Safety Report 5694709-X (Version None)
Quarter: 2008Q2

REPORT INFORMATION
  Report Type: 
  Country: None (occurrence: None)
  Receive Date: 20080404
  Receipt Date: 20080401
  Transmission Date: 20081010
  Serious: Yes (Disabling)
  Sender: FDA-Public Use
  Company Number: B0513709A

PATIENT
  Age: 47 Year
  Sex: Female

DRUGS (4)
  1. FLUTIDE DISKUS [Suspect]
     Indication: ASTHMA
     Dosage: 200MCG TWICE PER DAY
     Route: 055
     Dates: start: 20040903, end: 20080314
  2. SEREVENT [Concomitant]
     Indication: ASTHMA
     Dosage: 100MCG PER DAY
     Route: 055
     Dates: start: 20051028, end: 20071015
  3. SINGULAIR [Concomitant]
     Indication: ASTHMA
     Dosage: 10MG PER DAY
     Route: 048
     Dates: start: 20070928, end: 20071114
  4. CRAVIT [Concomitant]
     Indication: CYSTITIS
     Route: 048
     Dates: start: 20071016, end: 20071020

REACTIONS (3)
  - ANOSMIA [None]
  - HYPOSMIA [None]
  - PAROSMIA [None]
